FAERS Safety Report 11456939 (Version 2)
Quarter: 2015Q3

REPORT INFORMATION
  Report Type: Spontaneous
  Country: US (occurrence: US)
  Receive Date: 20150904
  Receipt Date: 20150908
  Transmission Date: 20151125
  Serious: Yes (Other)
  Sender: FDA-Public Use
  Company Number: US-BRISTOL-MYERS SQUIBB COMPANY-BMS-2015-057811

PATIENT
  Age: 61 Year
  Sex: Male

DRUGS (3)
  1. OXYCONTIN [Concomitant]
     Active Substance: OXYCODONE HYDROCHLORIDE
     Indication: PRODUCT USED FOR UNKNOWN INDICATION
     Dosage: 40 MG, QD
     Route: 065
  2. ABILIFY [Suspect]
     Active Substance: ARIPIPRAZOLE
     Indication: ANXIETY
     Dosage: 10 MG, QD
     Route: 048
     Dates: start: 201506
  3. ABILIFY [Suspect]
     Active Substance: ARIPIPRAZOLE
     Indication: POST-TRAUMATIC STRESS DISORDER
     Dosage: 15 MG, UNK
     Route: 048
     Dates: start: 2015

REACTIONS (6)
  - Speech disorder [Unknown]
  - Memory impairment [Unknown]
  - Vision blurred [Recovered/Resolved]
  - Off label use [Unknown]
  - Loss of consciousness [Unknown]
  - Dry mouth [Unknown]

NARRATIVE: CASE EVENT DATE: 201506
